FAERS Safety Report 5151993-9 (Version None)
Quarter: 2006Q4

REPORT INFORMATION
  Report Type: 
  Country: None (occurrence: None)
  Receive Date: 20061116
  Receipt Date: 20050304
  Transmission Date: 20070319
  Serious: Yes (Hospitalization)
  Sender: FDA-Public Use
  Company Number: DE-ELI_LILLY_AND_COMPANY-DE_050315434

PATIENT
  Age: 80 Year
  Sex: Male

DRUGS (3)
  1. ZYPREXA [Suspect]
     Indication: DEMENTIA ALZHEIMER'S TYPE
     Dosage: 5 MG, DAILY (1/D)
     Route: 048
     Dates: start: 20031216, end: 20040823
  2. ZOLOFT [Interacting]
     Dosage: 50 MG, DAILY (1/D)
     Route: 048
     Dates: start: 20031216, end: 20040824
  3. AXURA [Concomitant]
     Dosage: 5 MG, DAILY (1/D)
     Route: 048
     Dates: start: 20031216, end: 20040831

REACTIONS (6)
  - DELIRIUM [None]
  - DRUG INTERACTION [None]
  - DRUG LEVEL INCREASED [None]
  - HALLUCINATION, VISUAL [None]
  - INFECTION [None]
  - RESTLESSNESS [None]
